FAERS Safety Report 7622597-0 (Version None)
Quarter: 2011Q3

REPORT INFORMATION
  Report Type: 
  Country: None (occurrence: None)
  Receive Date: 20110719
  Receipt Date: 20110719
  Transmission Date: 20111222
  Serious: Yes (Hospitalization)
  Sender: FDA-Public Use
  Company Number: None

PATIENT
  Age: 69 Year
  Sex: Male
  Weight: 54.4316 kg

DRUGS (1)
  1. CEFTRIAXONE [Suspect]
     Indication: STREPTOCOCCAL ABSCESS
     Dosage: 2000MG DAILY IV
     Route: 042
     Dates: start: 20110602, end: 20110618

REACTIONS (2)
  - CHOLECYSTITIS [None]
  - CHOLELITHIASIS [None]
